FAERS Safety Report 11287459 (Version 3)
Quarter: 2017Q2

REPORT INFORMATION
  Report Type: Report from Study
  Country: US (occurrence: US)
  Receive Date: 20150721
  Receipt Date: 20170510
  Transmission Date: 20170829
  Serious: Yes (Other)
  Sender: FDA-Public Use
  Company Number: US-ROCHE-1609106

PATIENT
  Sex: Female

DRUGS (4)
  1. PACLITAXEL. [Suspect]
     Active Substance: PACLITAXEL
     Indication: BREAST CANCER
     Dosage: ON DAY 1,8 AND 15 OF 4 WEEK CYCLE
     Route: 042
  2. EVEROLIMUS [Suspect]
     Active Substance: EVEROLIMUS
     Indication: BREAST CANCER
     Route: 048
  3. TRASTUZUMAB [Suspect]
     Active Substance: TRASTUZUMAB
     Indication: BREAST CANCER
     Dosage: LOADING DOSE ON DAY 1
     Route: 042
  4. TRASTUZUMAB [Suspect]
     Active Substance: TRASTUZUMAB
     Route: 042

REACTIONS (43)
  - Aphthous ulcer [Unknown]
  - Oral pain [Unknown]
  - Dehydration [Unknown]
  - Blood potassium decreased [Unknown]
  - Paraesthesia [Unknown]
  - Bone pain [Unknown]
  - Hypocalcaemia [Unknown]
  - Hypophosphataemia [Unknown]
  - Pneumonia [Unknown]
  - Neutrophil count decreased [Unknown]
  - Haemoglobin decreased [Unknown]
  - Neurotoxicity [Unknown]
  - White blood cell count decreased [Unknown]
  - Cellulitis [Unknown]
  - Hypoalbuminaemia [Unknown]
  - Cataract [Unknown]
  - Hyperkalaemia [Unknown]
  - Left ventricular dysfunction [Unknown]
  - Viral infection [Unknown]
  - Lymphopenia [Unknown]
  - White blood cell count abnormal [Unknown]
  - Febrile neutropenia [Unknown]
  - Infusion related reaction [Unknown]
  - Sepsis [Unknown]
  - Hepatic function abnormal [Unknown]
  - Drug hypersensitivity [Unknown]
  - Weight increased [Unknown]
  - Device related infection [Unknown]
  - Respiratory failure [Unknown]
  - Hypersomnia [Unknown]
  - Interstitial lung disease [Unknown]
  - Blood triglycerides increased [Unknown]
  - Gamma-glutamyltransferase increased [Unknown]
  - Hepatic enzyme increased [Unknown]
  - Lethargy [Unknown]
  - Acute kidney injury [Unknown]
  - Syncope [Unknown]
  - Pneumocystis jirovecii pneumonia [Unknown]
  - Haemorrhoids [Unknown]
  - Gastritis [Unknown]
  - Haemoglobin abnormal [Unknown]
  - Gingivitis [Unknown]
  - Hyponatraemia [Unknown]
